FAERS Safety Report 9172300 (Version 2)
Quarter: 2013Q4

REPORT INFORMATION
  Report Type: Spontaneous
  Country: GB (occurrence: GB)
  Receive Date: 20130319
  Receipt Date: 20131028
  Transmission Date: 20140711
  Serious: Yes (Other)
  Sender: FDA-Public Use
  Company Number: GB-EISAI INC-E2090-02561-SPO-GB

PATIENT
  Age: 49 Year
  Sex: Female
  Weight: 93 kg

DRUGS (8)
  1. ZONISAMIDE [Suspect]
     Indication: PRODUCT USED FOR UNKNOWN INDICATION
     Route: 048
     Dates: start: 20121009
  2. ZONISAMIDE [Suspect]
     Dosage: DOSE INCREASED (UNSPECIFIED)
     Route: 048
     Dates: end: 20130208
  3. ASPIRIN [Concomitant]
     Indication: PRODUCT USED FOR UNKNOWN INDICATION
  4. ATORVASTATIN [Concomitant]
     Indication: PRODUCT USED FOR UNKNOWN INDICATION
  5. ESTRADIOL [Concomitant]
     Indication: PRODUCT USED FOR UNKNOWN INDICATION
  6. RAMIPRIL [Concomitant]
     Indication: PRODUCT USED FOR UNKNOWN INDICATION
  7. TEGRETOL [Concomitant]
     Indication: PRODUCT USED FOR UNKNOWN INDICATION
     Dosage: UNKNOWN
  8. TEGRETOL [Concomitant]
     Dosage: DOSE REDUCED; 600 MG/DAY

REACTIONS (3)
  - Gamma-glutamyltransferase increased [Unknown]
  - Depression [Not Recovered/Not Resolved]
  - Suicidal ideation [Unknown]
